FAERS Safety Report 6073582-4 (Version None)
Quarter: 2009Q1

REPORT INFORMATION
  Report Type: 
  Country: None (occurrence: None)
  Receive Date: 20090211
  Receipt Date: 20090130
  Transmission Date: 20090719
  Serious: Yes (Hospitalization)
  Sender: FDA-Public Use
  Company Number: JP-PFIZER INC-2008055151

PATIENT

DRUGS (6)
  1. SUNITINIB MALATE [Suspect]
     Dosage: 25 MG, 1X/DAY
     Route: 048
     Dates: start: 20060614
  2. ALLOPURINOL [Interacting]
     Route: 048
     Dates: start: 20080617, end: 20080630
  3. URALYT URATO [Concomitant]
     Route: 048
     Dates: start: 20080617, end: 20080630
  4. BLOPRESS [Concomitant]
     Dates: end: 20080630
  5. THYRADIN S [Concomitant]
     Route: 048
     Dates: start: 20080604, end: 20080630
  6. DERMOVATE [Concomitant]
     Route: 061
     Dates: start: 20080501, end: 20080703

REACTIONS (10)
  - DRUG ERUPTION [None]
  - DRUG INTERACTION [None]
  - HYPOTENSION [None]
  - INFECTION [None]
  - NEUTROPENIA [None]
  - PLATELET COUNT DECREASED [None]
  - PRURITUS [None]
  - RASH GENERALISED [None]
  - RENAL IMPAIRMENT [None]
  - WHITE BLOOD CELL COUNT DECREASED [None]
